FAERS Safety Report 22590274 (Version 1)
Quarter: 2023Q2

REPORT INFORMATION
  Report Type: Other
  Country: None (occurrence: NL)
  Receive Date: 20230612
  Receipt Date: 20230612
  Transmission Date: 20230721
  Serious: Yes (Hospitalization)
  Sender: FDA-Public Use
  Company Number: NL-B.Braun Medical Inc.-2142594

PATIENT
  Age: 24 Day
  Sex: Male
  Weight: 3 kg

DRUGS (3)
  1. SODIUM CHLORIDE FOR IRRIGATION [Suspect]
     Active Substance: SODIUM CHLORIDE
     Indication: Medication dilution
     Route: 054
  2. CEFTRIAXONE [Concomitant]
     Active Substance: CEFTRIAXONE
  3. METRONIDAZOLE [Concomitant]
     Active Substance: METRONIDAZOLE

REACTIONS (2)
  - Acidosis hyperchloraemic [Recovered/Resolved]
  - Diarrhoea [Recovered/Resolved]
